FAERS Safety Report 12260899 (Version 1)
Quarter: 2016Q2

REPORT INFORMATION
  Report Type: Spontaneous
  Country: US (occurrence: None)
  Receive Date: 20160412
  Receipt Date: 20160412
  Transmission Date: 20160815
  Serious: Yes (Death)
  Sender: FDA-Public Use
  Company Number: None

PATIENT
  Age: 51 Year
  Sex: Male

DRUGS (1)
  1. TRACLEER [Suspect]
     Active Substance: BOSENTAN
     Indication: PULMONARY ARTERIAL HYPERTENSION
     Route: 048
     Dates: start: 2013, end: 20160222

REACTIONS (4)
  - Renal failure [None]
  - Cholecystitis acute [None]
  - Post procedural haemorrhage [None]
  - Respiratory failure [None]

NARRATIVE: CASE EVENT DATE: 20160321
